FAERS Safety Report 7611000-2 (Version None)
Quarter: 2011Q3

REPORT INFORMATION
  Report Type: 
  Country: None (occurrence: None)
  Receive Date: 20110707
  Receipt Date: 20110620
  Transmission Date: 20111222
  Serious: Yes (Other)
  Sender: FDA-Public Use
  Company Number: ENTC2011-0213

PATIENT
  Sex: Male

DRUGS (1)
  1. STALEVO 100 [Suspect]
     Dosage: STRENGTH: 100/25/200 MG ORAL
     Route: 048

REACTIONS (5)
  - OVERDOSE [None]
  - URINE COLOUR ABNORMAL [None]
  - PRODUCT QUALITY ISSUE [None]
  - PRODUCT MEASURED POTENCY ISSUE [None]
  - PRODUCT SUBSTITUTION ISSUE [None]
